FAERS Safety Report 6123912 (Version 2)
Quarter: 2014Q3

REPORT INFORMATION
  Report Type: Spontaneous
  Country: US (occurrence: US)
  Receive Date: 20060908
  Receipt Date: 20140924
  Transmission Date: 20150326
  Serious: Yes (Hospitalization, Other)
  Sender: FDA-Public Use
  Company Number: US-AMGEN-US191162

PATIENT
  Age: 70 Year
  Sex: Female

DRUGS (1)
  1. ENBREL [Suspect]
     Active Substance: ETANERCEPT
     Indication: RHEUMATOID ARTHRITIS
     Dosage: 50 MG, QWK
     Route: 058

REACTIONS (11)
  - Bladder prolapse [Recovered/Resolved]
  - Nodule [Recovered/Resolved]
  - Haemorrhoids [Recovered/Resolved]
  - Condition aggravated [Unknown]
  - Arthropathy [Recovered/Resolved]
  - Foot operation [Recovered/Resolved]
  - Cataract [Recovered/Resolved]
  - Hysterectomy [Recovered/Resolved]
  - Knee arthroplasty [Recovered/Resolved]
  - Osteoporosis [Unknown]
  - Bone deformity [Recovered/Resolved]

NARRATIVE: CASE EVENT DATE: 20060301
